FAERS Safety Report 10024991 (Version 1)
Quarter: 2014Q1

REPORT INFORMATION
  Report Type: Spontaneous
  Country: US (occurrence: US)
  Receive Date: 20140320
  Receipt Date: 20140320
  Transmission Date: 20141002
  Serious: Yes (Hospitalization)
  Sender: FDA-Public Use
  Company Number: US-ABBVIE-14P-163-1213158-00

PATIENT
  Sex: Female

DRUGS (1)
  1. CREON [Suspect]
     Indication: PRODUCT USED FOR UNKNOWN INDICATION

REACTIONS (6)
  - Pancreatic disorder [Unknown]
  - Hospitalisation [Unknown]
  - Hospitalisation [Unknown]
  - Pain [Unknown]
  - Staphylococcal infection [Unknown]
  - Diarrhoea [Unknown]
